FAERS Safety Report 11123209 (Version 1)
Quarter: 2015Q2

REPORT INFORMATION
  Report Type: Spontaneous
  Country: US (occurrence: US)
  Receive Date: 20150519
  Receipt Date: 20150519
  Transmission Date: 20150821
  Serious: Yes (Other)
  Sender: FDA-Public Use
  Company Number: US-AUXILIUM PHARMACEUTICALS INC.-201411133

PATIENT
  Age: 55 Year
  Sex: Male

DRUGS (2)
  1. XIAFLEX [Suspect]
     Active Substance: COLLAGENASE CLOSTRIDIUM HISTOLYTICUM
     Route: 026
     Dates: start: 20141117, end: 20141117
  2. XIAFLEX [Suspect]
     Active Substance: COLLAGENASE CLOSTRIDIUM HISTOLYTICUM
     Indication: PEYRONIE^S DISEASE
     Route: 026
     Dates: start: 20141114, end: 20141114

REACTIONS (4)
  - Penile swelling [Recovering/Resolving]
  - Penile haematoma [Recovering/Resolving]
  - Penile pain [Recovering/Resolving]
  - Penile haemorrhage [Recovering/Resolving]

NARRATIVE: CASE EVENT DATE: 20141117
